FAERS Safety Report 15059858 (Version 1)
Quarter: 2018Q2

REPORT INFORMATION
  Report Type: Report from Study
  Country: KR (occurrence: KR)
  Receive Date: 20180625
  Receipt Date: 20180625
  Transmission Date: 20180711
  Serious: Yes (Hospitalization)
  Sender: FDA-Public Use
  Company Number: KR-EISAI MEDICAL RESEARCH-E7389-03995-SOL-KR

PATIENT
  Age: 44 Year
  Sex: Female
  Weight: 60 kg

DRUGS (9)
  1. DICAMAX [Concomitant]
  2. FENTAMAX [Concomitant]
  3. TATHION [Concomitant]
     Active Substance: GLUTATHIONE
     Indication: LIVER FUNCTION TEST ABNORMAL
     Route: 041
     Dates: start: 20130607, end: 20130618
  4. LUTHIONE [Concomitant]
     Indication: LIVER FUNCTION TEST ABNORMAL
     Route: 041
     Dates: start: 20130603, end: 20130606
  5. LUTHIONE [Concomitant]
     Route: 041
     Dates: start: 20130619, end: 20130626
  6. MOTILITONE [Concomitant]
     Active Substance: HERBALS
  7. DUPHALAC [Concomitant]
     Active Substance: LACTULOSE
  8. HALAVEN [Suspect]
     Active Substance: ERIBULIN MESYLATE
     Indication: BREAST CANCER
     Route: 041
     Dates: start: 20130603, end: 20130603
  9. URSA [Concomitant]
     Active Substance: URSODIOL
     Indication: LIVER FUNCTION TEST ABNORMAL
     Route: 048
     Dates: start: 20130603

REACTIONS (1)
  - Liver function test abnormal [Not Recovered/Not Resolved]

NARRATIVE: CASE EVENT DATE: 20130605
